FAERS Safety Report 18554608 (Version 1)
Quarter: 2020Q4

REPORT INFORMATION
  Report Type: Spontaneous
  Country: US (occurrence: US)
  Receive Date: 20201127
  Receipt Date: 20201127
  Transmission Date: 20210114
  Serious: No
  Sender: FDA-Public Use
  Company Number: US-JNJFOC-20201142631

PATIENT
  Age: 28 Year
  Sex: Male

DRUGS (2)
  1. DEXMEDETOMIDINE. [Concomitant]
     Active Substance: DEXMEDETOMIDINE
     Indication: PAROXYSMAL SYMPATHETIC HYPERACTIVITY
     Route: 042
  2. DURAGESIC [Suspect]
     Active Substance: FENTANYL
     Indication: PAROXYSMAL SYMPATHETIC HYPERACTIVITY
     Route: 065

REACTIONS (2)
  - Product use in unapproved indication [Unknown]
  - Off label use [Unknown]
